FAERS Safety Report 8312529-4 (Version None)
Quarter: 2012Q2

REPORT INFORMATION
  Report Type: 
  Country: None (occurrence: None)
  Receive Date: 20120425
  Receipt Date: 20120411
  Transmission Date: 20120825
  Serious: Yes (Hospitalization)
  Sender: FDA-Public Use
  Company Number: CHPA2012CA009146

PATIENT
  Age: 59 Year
  Sex: Male

DRUGS (3)
  1. PANTOPRAZOLE [Concomitant]
     Indication: GASTRIC PH DECREASED
     Dosage: UNK, UNK
     Dates: start: 20120201
  2. SLEEP AID [Concomitant]
     Indication: SLEEP DISORDER THERAPY
     Dosage: UNK, UNK
  3. MAALOX ANTACID WITH ANTI-GAS EXTRA-STRENGTH [Suspect]
     Indication: DYSPEPSIA
     Dosage: 6 TSP, QHS
     Route: 048
     Dates: start: 20100401

REACTIONS (4)
  - JAUNDICE [None]
  - INCORRECT DRUG ADMINISTRATION DURATION [None]
  - HEPATIC CIRRHOSIS [None]
  - INCORRECT DOSE ADMINISTERED [None]
